FAERS Safety Report 20862447 (Version 1)
Quarter: 2022Q2

REPORT INFORMATION
  Report Type: Spontaneous
  Country: US (occurrence: None)
  Receive Date: 20220523
  Receipt Date: 20220523
  Transmission Date: 20220721
  Serious: Yes (Hospitalization)
  Sender: FDA-Public Use
  Company Number: None

PATIENT
  Age: 78 Year
  Sex: Male
  Weight: 63 kg

DRUGS (2)
  1. ALENDRONATE [Suspect]
     Active Substance: ALENDRONATE SODIUM
     Indication: Osteopenia
     Dosage: 35 MG QWEEK PO
     Route: 048
     Dates: start: 20211028, end: 20211116
  2. ASPIRIN [Suspect]
     Active Substance: ASPIRIN
     Indication: Cerebrovascular accident
     Dosage: 81 MG EVERY DAY PO?
     Route: 048
     Dates: end: 20211114

REACTIONS (4)
  - Haematochezia [None]
  - Haemoglobin decreased [None]
  - Gastrointestinal haemorrhage [None]
  - Gastritis [None]

NARRATIVE: CASE EVENT DATE: 20211114
